FAERS Safety Report 21947351 (Version 3)
Quarter: 2023Q1

REPORT INFORMATION
  Report Type: Spontaneous
  Country: DE (occurrence: DE)
  Receive Date: 20230202
  Receipt Date: 20230209
  Transmission Date: 20230417
  Serious: Yes (Death, Life-Threatening, Hospitalization, Other)
  Sender: FDA-Public Use
  Company Number: DE-GILEAD-2023-0615100

PATIENT
  Age: 67 Year
  Sex: Male

DRUGS (1)
  1. YESCARTA [Suspect]
     Active Substance: AXICABTAGENE CILOLEUCEL
     Indication: Diffuse large B-cell lymphoma
     Dosage: UNK
     Route: 042
     Dates: start: 20221122, end: 20221122

REACTIONS (3)
  - Immune effector cell-associated neurotoxicity syndrome [Fatal]
  - Loss of personal independence in daily activities [Not Recovered/Not Resolved]
  - Infection [Unknown]

NARRATIVE: CASE EVENT DATE: 20221128
